FAERS Safety Report 26082966 (Version 1)
Quarter: 2025Q4

REPORT INFORMATION
  Report Type: Spontaneous
  Country: US (occurrence: US)
  Receive Date: 20251124
  Receipt Date: 20251124
  Transmission Date: 20260117
  Serious: Yes (Other)
  Sender: BAYER HEALTHCARE PHARMACEUTICALS INC.
  Company Number: US-BAYER-2025A154332

PATIENT
  Age: 57 Year
  Sex: Male

DRUGS (4)
  1. JIVI [Suspect]
     Active Substance: DAMOCTOCOG ALFA PEGOL
     Indication: Factor VIII deficiency
     Dosage: 2696 U, JIVI 500 IU: INFUSE~2696 UNITS
     Route: 042
     Dates: start: 202406
  2. JIVI [Suspect]
     Active Substance: DAMOCTOCOG ALFA PEGOL
     Indication: Factor VIII deficiency
     Dosage: 2696 U, JIVI 2000 IU: INFUSE~2696 UNITS
     Route: 042
     Dates: start: 202406
  3. JIVI [Suspect]
     Active Substance: DAMOCTOCOG ALFA PEGOL
     Indication: Factor VIII deficiency
     Dosage: 2 DF
     Route: 042
     Dates: start: 202511, end: 202511
  4. HEMLIBRA [Concomitant]
     Active Substance: EMICIZUMAB-KXWH

REACTIONS (4)
  - Post procedural haemorrhage [None]
  - Post procedural haemorrhage [None]
  - Dental care [None]
  - Dental care [None]

NARRATIVE: CASE EVENT DATE: 20251106
